FAERS Safety Report 20427994 (Version 1)
Quarter: 2022Q1

REPORT INFORMATION
  Report Type: Spontaneous
  Country: US (occurrence: US)
  Receive Date: 20220204
  Receipt Date: 20220204
  Transmission Date: 20220423
  Serious: No
  Sender: FDA-Public Use
  Company Number: US-LUNDBECK-DKLU3043688

PATIENT
  Age: 64 Year
  Sex: Male

DRUGS (2)
  1. NORTHERA [Suspect]
     Active Substance: DROXIDOPA
     Indication: Orthostatic hypotension
     Route: 048
  2. NORTHERA [Suspect]
     Active Substance: DROXIDOPA
     Dosage: AS NEEDED WHEN BLOOD PRESSURE DROPS AND ORTHOSTATIC CHALLENGES
     Route: 048

REACTIONS (3)
  - Blood pressure decreased [Unknown]
  - Therapeutic product effect decreased [Unknown]
  - Off label use [Unknown]
